FAERS Safety Report 22110196 (Version 7)
Quarter: 2023Q4

REPORT INFORMATION
  Report Type: Spontaneous
  Country: US (occurrence: US)
  Receive Date: 20230317
  Receipt Date: 20231228
  Transmission Date: 20240110
  Serious: Yes (Other)
  Sender: FDA-Public Use
  Company Number: US-PFIZER INC-PV202300049677

PATIENT
  Age: 75 Year
  Sex: Female

DRUGS (1)
  1. XELJANZ [Suspect]
     Active Substance: TOFACITINIB CITRATE
     Dosage: UNK
     Dates: end: 2023

REACTIONS (13)
  - Urinary tract infection [Recovered/Resolved]
  - Product dose omission issue [Unknown]
  - Headache [Unknown]
  - Oropharyngeal pain [Unknown]
  - Diarrhoea [Unknown]
  - Fatigue [Unknown]
  - Gingivitis [Unknown]
  - Tooth infection [Unknown]
  - Nasopharyngitis [Unknown]
  - Tremor [Unknown]
  - Nervousness [Unknown]
  - Decreased appetite [Unknown]
  - Cystitis [Not Recovered/Not Resolved]
